FAERS Safety Report 7668309-6 (Version None)
Quarter: 2011Q3

REPORT INFORMATION
  Report Type: 
  Country: None (occurrence: None)
  Receive Date: 20110808
  Receipt Date: 20110805
  Transmission Date: 20111222
  Serious: Yes (Other)
  Sender: FDA-Public Use
  Company Number: US-PFIZER INC-2011138938

PATIENT
  Sex: Male
  Weight: 104.31 kg

DRUGS (3)
  1. OMEPRAZOLE [Concomitant]
     Dosage: UNK
  2. BENICAR [Concomitant]
     Dosage: UNK
  3. ALPRAZOLAM [Suspect]
     Indication: ANXIETY
     Dosage: 0.5 MG, 2X/DAY
     Route: 048
     Dates: start: 20110501, end: 20110501

REACTIONS (1)
  - DERMATITIS HERPETIFORMIS [None]
